FAERS Safety Report 6261908-8 (Version None)
Quarter: 2009Q3

REPORT INFORMATION
  Report Type: 
  Country: None (occurrence: None)
  Receive Date: 20090709
  Receipt Date: 20090708
  Transmission Date: 20100115
  Serious: Yes (Hospitalization)
  Sender: FDA-Public Use
  Company Number: B0462948A

PATIENT
  Age: 94 Year
  Sex: Female
  Weight: 58 kg

DRUGS (7)
  1. AUGMENTIN [Suspect]
     Route: 048
     Dates: start: 20070201
  2. SECTRAL [Concomitant]
     Dosage: 200MG PER DAY
     Route: 048
  3. VASTAREL [Concomitant]
     Dosage: 35MG PER DAY
     Route: 048
  4. NITROGLYCERIN [Concomitant]
     Route: 062
  5. NEXIUM [Concomitant]
     Dosage: 1UNIT PER DAY
     Route: 048
  6. PLAVIX [Concomitant]
     Dosage: 75MG PER DAY
     Route: 048
  7. FUMAFER [Concomitant]
     Dates: end: 20070201

REACTIONS (10)
  - ABDOMINAL DISCOMFORT [None]
  - CLOSTRIDIUM DIFFICILE COLITIS [None]
  - DIARRHOEA [None]
  - FAECES DISCOLOURED [None]
  - FLATULENCE [None]
  - INFLAMMATION [None]
  - LEUKOCYTOSIS [None]
  - MELAENA [None]
  - PYREXIA [None]
  - STAPHYLOCOCCAL INFECTION [None]
